FAERS Safety Report 4557760-9 (Version None)
Quarter: 2005Q1

REPORT INFORMATION
  Report Type: 
  Country: None (occurrence: None)
  Receive Date: 20050103
  Receipt Date: 20040730
  Transmission Date: 20050727
  Serious: Yes (Other)
  Sender: FDA-Public Use
  Company Number: 2004UW16227

PATIENT
  Age: 58 Year
  Sex: Female
  Weight: 70.3075 kg

DRUGS (8)
  1. CRESTOR [Suspect]
     Indication: HYPERCHOLESTEROLAEMIA
     Dosage: 10 MG PO
     Route: 048
     Dates: start: 20040518
  2. WELLBUTRIN [Concomitant]
  3. CELEBREX [Concomitant]
  4. SINGULAIR [Concomitant]
  5. MULTI-VITAMINS [Concomitant]
  6. PROGESTERONE [Concomitant]
  7. ESTROGEN CREAM [Concomitant]
  8. FOSAMAX [Concomitant]

REACTIONS (1)
  - ALOPECIA [None]
